FAERS Safety Report 8778280 (Version 1)
Quarter: 2012Q4

REPORT INFORMATION
  Report Type: 
  Country: FR (occurrence: FR)
  Receive Date: 20120912
  Receipt Date: 20120912
  Transmission Date: 20130627
  Serious: Yes (Hospitalization)
  Sender: FDA-Public Use
  Company Number: FR-ROCHE-1122186

PATIENT
  Age: 82 Year
  Sex: Female

DRUGS (2)
  1. ROCEPHINE [Suspect]
     Indication: ERYSIPELAS
     Route: 030
     Dates: start: 20120706, end: 20120712
  2. ZANIDIP [Suspect]
     Indication: OEDEMA PERIPHERAL
     Route: 048
     Dates: start: 20120706, end: 20120712

REACTIONS (3)
  - Toxic skin eruption [Recovered/Resolved]
  - Rash maculo-papular [Recovered/Resolved]
  - Pruritus [Recovered/Resolved]
